FAERS Safety Report 8346910-4 (Version None)
Quarter: 2012Q2

REPORT INFORMATION
  Report Type: 
  Country: None (occurrence: None)
  Receive Date: 20120509
  Receipt Date: 20120507
  Transmission Date: 20120825
  Serious: Yes (Death)
  Sender: FDA-Public Use
  Company Number: DE-SANOFI-AVENTIS-2012SA024669

PATIENT
  Sex: Male
  Weight: 60.8 kg

DRUGS (8)
  1. FLUOROURACIL [Suspect]
     Route: 041
     Dates: start: 20120315, end: 20120315
  2. DOCETAXEL [Suspect]
     Route: 041
     Dates: start: 20120315, end: 20120315
  3. DOCETAXEL [Suspect]
     Route: 041
  4. DEXAMETHASONE [Concomitant]
     Indication: PREMEDICATION
     Route: 065
     Dates: start: 20120329, end: 20120329
  5. CISPLATIN [Suspect]
     Route: 041
     Dates: start: 20120315, end: 20120315
  6. FENISTIL [Concomitant]
     Indication: PREMEDICATION
     Route: 065
     Dates: start: 20120315, end: 20120315
  7. CETUXIMAB [Suspect]
     Route: 041
     Dates: start: 20120315, end: 20120315
  8. GRANISETRON HYDROCHLORIDE [Concomitant]
     Indication: PREMEDICATION
     Route: 065
     Dates: start: 20120315, end: 20120315

REACTIONS (1)
  - TUMOUR HAEMORRHAGE [None]
